FAERS Safety Report 25160580 (Version 2)
Quarter: 2025Q3

REPORT INFORMATION
  Report Type: Spontaneous
  Country: US (occurrence: US)
  Receive Date: 20250404
  Receipt Date: 20250707
  Transmission Date: 20251020
  Serious: No
  Sender: MANKIND PHARMA
  Company Number: US-MankindUS-000351

PATIENT
  Age: 92 Year
  Sex: Female

DRUGS (1)
  1. FORMOTEROL FUMARATE [Suspect]
     Active Substance: FORMOTEROL FUMARATE
     Indication: Pulmonary hypertension

REACTIONS (2)
  - Dose calculation error [Unknown]
  - Extra dose administered [Unknown]

NARRATIVE: CASE EVENT DATE: 20250101
